FAERS Safety Report 8929038 (Version 1)
Quarter: 2012Q4

REPORT INFORMATION
  Report Type: 
  Country: CO (occurrence: CO)
  Receive Date: 20121128
  Receipt Date: 20121128
  Transmission Date: 20130627
  Serious: Yes (Death)
  Sender: FDA-Public Use
  Company Number: PHHY2012CO042969

PATIENT
  Age: 58 Year
  Sex: Female

DRUGS (7)
  1. AFINITOR [Suspect]
     Indication: NEUROENDOCRINE TUMOUR
     Dosage: 10 mg,day
     Route: 048
     Dates: start: 20120507
  2. AFINITOR [Suspect]
     Dosage: 5 mg, daily
  3. SANDOSTATIN LAR [Suspect]
     Indication: NEUROENDOCRINE TUMOUR
     Dosage: 30 mg, QMO
     Route: 030
     Dates: start: 20120507
  4. TAMOXIFEN [Concomitant]
  5. FUROSEMIDE [Concomitant]
  6. HYDROMORPHONE [Concomitant]
  7. XYLOPROCT [Concomitant]

REACTIONS (3)
  - General physical health deterioration [Fatal]
  - Pain [Not Recovered/Not Resolved]
  - Mucosal inflammation [Unknown]
